FAERS Safety Report 11107211 (Version 2)
Quarter: 2015Q2

REPORT INFORMATION
  Report Type: Spontaneous
  Country: US (occurrence: US)
  Receive Date: 20150512
  Receipt Date: 20150513
  Transmission Date: 20150821
  Serious: Yes (Hospitalization, Other)
  Sender: FDA-Public Use
  Company Number: US-PFIZER INC-2015161827

PATIENT
  Age: 65 Year
  Sex: Male
  Weight: 136 kg

DRUGS (5)
  1. HUMALOG [Concomitant]
     Active Substance: INSULIN LISPRO
     Indication: DIABETES MELLITUS
     Dosage: 40 IU, WITH EACH MEAL
     Route: 058
  2. CITALOPRAM [Concomitant]
     Active Substance: CITALOPRAM HYDROBROMIDE
     Indication: DEPRESSION
  3. LANTUS [Concomitant]
     Active Substance: INSULIN GLARGINE
     Indication: DIABETES MELLITUS
     Dosage: 35 IU, DAILY IN THE EVENING
     Route: 058
  4. PROTONIX [Suspect]
     Active Substance: PANTOPRAZOLE SODIUM
     Indication: GASTRIC ULCER HAEMORRHAGE
     Dosage: 40 MG, 2X/DAY
  5. CITALOPRAM [Concomitant]
     Active Substance: CITALOPRAM HYDROBROMIDE
     Indication: ANXIETY
     Dosage: 20 MG, DAILY

REACTIONS (2)
  - Ulcer haemorrhage [Unknown]
  - Drug dose omission [Unknown]
